FAERS Safety Report 23837371 (Version 1)
Quarter: 2024Q2

REPORT INFORMATION
  Report Type: Spontaneous
  Country: US (occurrence: US)
  Receive Date: 20240509
  Receipt Date: 20240509
  Transmission Date: 20240716
  Serious: No
  Sender: FDA-Public Use
  Company Number: US-INCYTE CORPORATION-2024IN004098

PATIENT

DRUGS (1)
  1. PEMAZYRE [Suspect]
     Active Substance: PEMIGATINIB
     Indication: Cholangiocarcinoma
     Dosage: 4.5 MG ONCE DAILY FOR FIRST 14 DAYS OF EACH 21-DAY CYCLE.
     Route: 065
     Dates: start: 2021

REACTIONS (2)
  - Calcinosis [Unknown]
  - Tumour biopsy [Unknown]
